FAERS Safety Report 8561619-X (Version None)
Quarter: 2012Q3

REPORT INFORMATION
  Report Type: 
  Country: None (occurrence: None)
  Receive Date: 20120727
  Receipt Date: 20120727
  Transmission Date: 20120928
  Serious: Yes (Hospitalization)
  Sender: FDA-Public Use
  Company Number: None

PATIENT
  Age: 76 Year
  Sex: Female
  Weight: 50.3 kg

DRUGS (7)
  1. ARICEPT [Concomitant]
  2. NAMENDA [Concomitant]
  3. REMERON [Concomitant]
  4. UNKNOWN ANTIBIOTIC [Suspect]
     Dosage: RECENT
  5. COUMADIN [Suspect]
     Dosage: 4MG DAILY PO CHRONIC
     Route: 048
  6. ABILIFY [Concomitant]
  7. PREDNISONE TAB [Suspect]
     Indication: JOINT SWELLING
     Dosage: 30MG DAILY PO RECENT
     Route: 048

REACTIONS (6)
  - RENAL FAILURE ACUTE [None]
  - DRUG INTERACTION [None]
  - CONTUSION [None]
  - HAEMORRHAGIC ANAEMIA [None]
  - UPPER GASTROINTESTINAL HAEMORRHAGE [None]
  - INTERNATIONAL NORMALISED RATIO INCREASED [None]
